FAERS Safety Report 5245973-2 (Version None)
Quarter: 2007Q1

REPORT INFORMATION
  Report Type: 
  Country: None (occurrence: None)
  Receive Date: 20070220
  Receipt Date: 20070207
  Transmission Date: 20070707
  Serious: No
  Sender: FDA-Public Use
  Company Number: 2007-154288-NL

PATIENT
  Age: 53 Year
  Sex: Female

DRUGS (4)
  1. MIRTAZAPINE [Suspect]
     Dosage: 30 MG,
  2. HYDROCHLOROTHIAZIDE [Concomitant]
  3. ZOPICLONE [Concomitant]
  4. SERTRALINE HYDROCHLORIDE [Concomitant]

REACTIONS (3)
  - BACK PAIN [None]
  - GAIT DISTURBANCE [None]
  - MYALGIA [None]
